FAERS Safety Report 8214832-5 (Version None)
Quarter: 2012Q1

REPORT INFORMATION
  Report Type: 
  Country: None (occurrence: None)
  Receive Date: 20120316
  Receipt Date: 20120307
  Transmission Date: 20120608
  Serious: Yes (Other)
  Sender: FDA-Public Use
  Company Number: GB-JNJFOC-20111202784

PATIENT
  Sex: Male
  Weight: 94 kg

DRUGS (8)
  1. COZAAR [Concomitant]
  2. ACETAMINOPHEN [Concomitant]
  3. BENDROFLUAZIDE [Concomitant]
  4. XARELTO [Suspect]
     Indication: THROMBOSIS PROPHYLAXIS
     Route: 065
  5. XARELTO [Suspect]
     Indication: KNEE ARTHROPLASTY
     Route: 065
  6. VERAPAMIL HYDROCHLORIDE [Concomitant]
  7. SIMVASTATIN [Concomitant]
  8. HEPARIN [Concomitant]

REACTIONS (1)
  - HALLUCINATION [None]
